FAERS Safety Report 9102720 (Version 2)
Quarter: 2014Q1

REPORT INFORMATION
  Report Type: Spontaneous
  Country: US (occurrence: US)
  Receive Date: 20130220
  Receipt Date: 20140325
  Transmission Date: 20141002
  Serious: Yes (Hospitalization)
  Sender: FDA-Public Use
  Company Number: US-B.I. PHARMACEUTICALS,INC./RIDGEFIELD-2013-BI-03937BP

PATIENT
  Sex: Male
  Weight: 90.72 kg

DRUGS (4)
  1. PRADAXA [Suspect]
     Indication: ANTICOAGULANT THERAPY
     Route: 065
     Dates: start: 20110107
  2. PRADAXA [Suspect]
     Indication: PULMONARY EMBOLISM
  3. LORTAB [Concomitant]
     Route: 065
  4. LISINOPRIL [Concomitant]
     Route: 065

REACTIONS (5)
  - Rectal haemorrhage [Unknown]
  - Epistaxis [Unknown]
  - Prostatic haemorrhage [Unknown]
  - Myocardial infarction [Unknown]
  - Ischaemic stroke [Unknown]
